FAERS Safety Report 16886490 (Version 2)
Quarter: 2019Q4

REPORT INFORMATION
  Report Type: Spontaneous
  Country: US (occurrence: US)
  Receive Date: 20191004
  Receipt Date: 20191219
  Transmission Date: 20200122
  Serious: Yes (Hospitalization, Other)
  Sender: FDA-Public Use
  Company Number: US-ASTRAZENECA-2019SF39880

PATIENT
  Age: 20989 Day
  Sex: Female
  Weight: 99.8 kg

DRUGS (48)
  1. ONGLYZA [Suspect]
     Active Substance: SAXAGLIPTIN HYDROCHLORIDE
     Indication: TYPE 2 DIABETES MELLITUS
     Route: 048
     Dates: start: 201311
  2. PRAVASTATIN. [Concomitant]
     Active Substance: PRAVASTATIN
  3. HYDROXYZINE [Concomitant]
     Active Substance: HYDROXYZINE HYDROCHLORIDE
  4. VANCOMYCIN [Concomitant]
     Active Substance: VANCOMYCIN
  5. LEVOFLOXACIN. [Concomitant]
     Active Substance: LEVOFLOXACIN
  6. SPIRONOLACTONE. [Concomitant]
     Active Substance: SPIRONOLACTONE
  7. PREDNISONE. [Concomitant]
     Active Substance: PREDNISONE
  8. LOSARTAN. [Concomitant]
     Active Substance: LOSARTAN
  9. SODIUM CHLORIDE. [Concomitant]
     Active Substance: SODIUM CHLORIDE
  10. ENOXAPARIN [Concomitant]
     Active Substance: ENOXAPARIN
  11. IPRATROPIUM-ALBUTEROL [Concomitant]
     Active Substance: ALBUTEROL\IPRATROPIUM
  12. IOPAMIDOL [Concomitant]
     Active Substance: IOPAMIDOL
  13. LUBIPROSTONE [Concomitant]
     Active Substance: LUBIPROSTONE
  14. SPIRONOLACTONE. [Concomitant]
     Active Substance: SPIRONOLACTONE
  15. SPIRONOLACTONE. [Concomitant]
     Active Substance: SPIRONOLACTONE
  16. ADENOSINE. [Concomitant]
     Active Substance: ADENOSINE
  17. ASPIRIN. [Concomitant]
     Active Substance: ASPIRIN
  18. INSULIN ASPART [Concomitant]
     Active Substance: INSULIN ASPART
  19. METFORMIN [Concomitant]
     Active Substance: METFORMIN HYDROCHLORIDE
  20. LOSARTAN. [Concomitant]
     Active Substance: LOSARTAN
  21. POTASSIUM CHLORIDE. [Concomitant]
     Active Substance: POTASSIUM CHLORIDE
  22. ONDANSETRON [Concomitant]
     Active Substance: ONDANSETRON
  23. MIDAZOLAM [Concomitant]
     Active Substance: MIDAZOLAM HYDROCHLORIDE
  24. ALBUTEROL. [Concomitant]
     Active Substance: ALBUTEROL
  25. FOLIC ACID. [Concomitant]
     Active Substance: FOLIC ACID
  26. ACETAMINOPHEN+TRAMADOL HYDROCHLORIDE [Concomitant]
     Active Substance: ACETAMINOPHEN\TRAMADOL HYDROCHLORIDE
  27. POTASSIUM CHLORIDE. [Concomitant]
     Active Substance: POTASSIUM CHLORIDE
  28. PANTOPRAZOLE [Concomitant]
     Active Substance: PANTOPRAZOLE
  29. ENOXAPARIN [Concomitant]
     Active Substance: ENOXAPARIN
  30. MAGNESIUM SULFATE. [Concomitant]
     Active Substance: MAGNESIUM SULFATE
  31. METOPROLOL. [Concomitant]
     Active Substance: METOPROLOL
  32. PREDNISONE. [Concomitant]
     Active Substance: PREDNISONE
  33. METHYLPREDNISOLONE. [Concomitant]
     Active Substance: METHYLPREDNISOLONE
  34. INSULIN LISPRO [Concomitant]
     Active Substance: INSULIN LISPRO
  35. RAMIPRIL. [Concomitant]
     Active Substance: RAMIPRIL
  36. ONGLYZA [Suspect]
     Active Substance: SAXAGLIPTIN HYDROCHLORIDE
     Indication: TYPE 2 DIABETES MELLITUS
     Route: 048
     Dates: start: 201210, end: 201511
  37. BUSPIRONE [Concomitant]
     Active Substance: BUSPIRONE HYDROCHLORIDE
  38. PREDNISONE. [Concomitant]
     Active Substance: PREDNISONE
  39. REGADENOSON [Concomitant]
     Active Substance: REGADENOSON
  40. CARVEDILOL. [Concomitant]
     Active Substance: CARVEDILOL
  41. INSULIN DETEMIR [Concomitant]
     Active Substance: INSULIN DETEMIR
  42. SERTRALINE [Concomitant]
     Active Substance: SERTRALINE HYDROCHLORIDE
  43. VANCOMYCIN [Concomitant]
     Active Substance: VANCOMYCIN
  44. OMEPRAZOLE. [Concomitant]
     Active Substance: OMEPRAZOLE
  45. INSULIN LISPRO [Concomitant]
     Active Substance: INSULIN LISPRO
  46. LOSARTAN. [Concomitant]
     Active Substance: LOSARTAN
  47. FUROSEMIDE. [Concomitant]
     Active Substance: FUROSEMIDE
  48. FENTANYL. [Concomitant]
     Active Substance: FENTANYL

REACTIONS (4)
  - Cardiac failure congestive [Unknown]
  - Acute respiratory failure [Unknown]
  - Cardiac failure [Unknown]
  - Acute left ventricular failure [Unknown]

NARRATIVE: CASE EVENT DATE: 20131028
